FAERS Safety Report 7123887-0 (Version None)
Quarter: 2010Q4

REPORT INFORMATION
  Report Type: 
  Country: None (occurrence: None)
  Receive Date: 20101125
  Receipt Date: 20101027
  Transmission Date: 20110411
  Serious: Yes (Death)
  Sender: FDA-Public Use
  Company Number: GB-AMGEN-GBRCT2010001675

PATIENT

DRUGS (11)
  1. ETANERCEPT [Suspect]
     Indication: RHEUMATOID ARTHRITIS
     Dosage: 25 MG, 2 TIMES/WK
     Route: 058
     Dates: start: 20041215
  2. PREDNISOLONE [Concomitant]
     Dosage: UNKNOWN
  3. CODEINE PHOSPHATE/PARACETAMOL [Concomitant]
     Dosage: UNKNOWN
  4. COLOFAC [Concomitant]
     Dosage: UNKNOWN
  5. ZIMOVANE [Concomitant]
     Dosage: UNKNOWN
  6. GAVISCON [Concomitant]
     Dosage: UNKNOWN
  7. HYPROMELLOSE [Concomitant]
     Dosage: UNKNOWN
  8. LANSOPRAZOLE [Concomitant]
     Dosage: UNKNOWN
  9. VISCOTEARS [Concomitant]
     Dosage: UNKNOWN
  10. METHOTREXATE [Concomitant]
     Dosage: UNKNOWN
  11. FOLIC ACID [Concomitant]
     Dosage: UNKNOWN

REACTIONS (2)
  - HYPERTENSION [None]
  - MYOCARDIAL INFARCTION [None]
